FAERS Safety Report 5599705-9 (Version None)
Quarter: 2008Q1

REPORT INFORMATION
  Report Type: 
  Country: None (occurrence: None)
  Receive Date: 20080118
  Receipt Date: 20080118
  Transmission Date: 20080703
  Serious: Yes (Hospitalization)
  Sender: FDA-Public Use
  Company Number: None

PATIENT
  Age: 50 Year
  Sex: Female

DRUGS (3)
  1. METOPROLOL TARTRATE [Suspect]
     Indication: SUICIDE ATTEMPT
     Dates: start: 20071225
  2. CITALOPRAM HYDROBROMIDE [Concomitant]
  3. ARTHROTEC [Concomitant]

REACTIONS (2)
  - HEART RATE DECREASED [None]
  - INCORRECT DOSE ADMINISTERED [None]
